FAERS Safety Report 6708272-5 (Version None)
Quarter: 2010Q2

REPORT INFORMATION
  Report Type: 
  Country: None (occurrence: None)
  Receive Date: 20100503
  Receipt Date: 20091105
  Transmission Date: 20101027
  Serious: No
  Sender: FDA-Public Use
  Company Number: US-ASTRAZENECA-2009SE24653

PATIENT
  Age: 51 Year
  Sex: Female
  Weight: 105.2 kg

DRUGS (9)
  1. NEXIUM [Suspect]
     Indication: GASTROOESOPHAGEAL REFLUX DISEASE
     Route: 048
  2. NEXIUM [Suspect]
     Route: 048
  3. NEXIUM [Suspect]
     Route: 048
     Dates: start: 20090401, end: 20091028
  4. LISINOPRIL [Concomitant]
     Indication: HYPERTENSION
  5. CRESTOR [Concomitant]
     Indication: BLOOD CHOLESTEROL INCREASED
  6. WELLBUTRIN [Concomitant]
  7. PREMARIN [Concomitant]
     Indication: HORMONE THERAPY
  8. ADVAIR DISKUS 100/50 [Concomitant]
     Indication: ASTHMA
  9. ALBUTEROL [Concomitant]
     Indication: ASTHMA

REACTIONS (1)
  - APHONIA [None]
